FAERS Safety Report 4308202-X (Version None)
Quarter: 2004Q1

REPORT INFORMATION
  Report Type: 
  Country: None (occurrence: None)
  Receive Date: 20040301
  Receipt Date: 20030815
  Transmission Date: 20041129
  Serious: No
  Sender: FDA-Public Use
  Company Number: US-BRISTOL-MYERS SQUIBB COMPANY-12357489

PATIENT
  Age: 62 Year
  Sex: Male
  Weight: 113 kg

DRUGS (5)
  1. GLUCOPHAGE [Suspect]
     Indication: DIABETES MELLITUS
     Dosage: DURATION OF THERAPY:  ^FOR YEARS^
     Route: 048
     Dates: end: 20030814
  2. GLUCOTROL [Concomitant]
  3. AVAPRO [Concomitant]
  4. ZOCOR [Concomitant]
  5. DIOVAN [Concomitant]

REACTIONS (3)
  - BLOOD GLUCOSE INCREASED [None]
  - DIARRHOEA [None]
  - GLYCOSYLATED HAEMOGLOBIN INCREASED [None]
